FAERS Safety Report 6935805-6 (Version None)
Quarter: 2010Q3

REPORT INFORMATION
  Report Type: 
  Country: None (occurrence: None)
  Receive Date: 20100823
  Receipt Date: 20100809
  Transmission Date: 20110219
  Serious: Yes (Other)
  Sender: FDA-Public Use
  Company Number: DE-ELI_LILLY_AND_COMPANY-DE201008002535

PATIENT
  Sex: Female

DRUGS (5)
  1. ZYPADHERA [Suspect]
     Dosage: 300 MG, UNKNOWN
     Route: 030
  2. ZYPADHERA [Suspect]
     Dosage: 405 MG, UNKNOWN
     Route: 030
  3. ZYPREXA [Suspect]
     Dosage: 5 MG, 2/D
     Route: 065
  4. ZYPREXA [Suspect]
     Dosage: 5 MG, EACH MORNING
     Route: 065
  5. ZYPREXA [Suspect]
     Dosage: 10 MG, EACH EVENING
     Route: 065

REACTIONS (4)
  - MOVEMENT DISORDER [None]
  - PERSONALITY DISORDER [None]
  - RESTLESSNESS [None]
  - WEIGHT INCREASED [None]
